FAERS Safety Report 9924298 (Version 2)
Quarter: 2014Q2

REPORT INFORMATION
  Report Type: Spontaneous
  Country: US (occurrence: US)
  Receive Date: 20140226
  Receipt Date: 20140410
  Transmission Date: 20141212
  Serious: No
  Sender: FDA-Public Use
  Company Number: US-009507513-1401USA014452

PATIENT
  Age: 28 Year
  Sex: Female
  Weight: 67.12 kg

DRUGS (1)
  1. NEXPLANON [Suspect]
     Indication: CONTRACEPTION
     Dosage: UNK
     Route: 059
     Dates: start: 20140113, end: 20140127

REACTIONS (4)
  - Impaired healing [Recovered/Resolved]
  - Implant site pruritus [Recovered/Resolved]
  - Device expulsion [Recovered/Resolved]
  - Medical device complication [Recovered/Resolved]
